FAERS Safety Report 5046870-8 (Version None)
Quarter: 2006Q3

REPORT INFORMATION
  Report Type: 
  Country: None (occurrence: None)
  Receive Date: 20060705
  Receipt Date: 20060705
  Transmission Date: 20061208
  Serious: Yes (Hospitalization)
  Sender: FDA-Public Use
  Company Number: None

PATIENT
  Age: 57 Year
  Sex: Male
  Weight: 83.9154 kg

DRUGS (4)
  1. ERBITUX [Suspect]
     Indication: TONSIL CANCER
     Dosage: 250 MG/M2 ONCE /WEEK IV DRIP
     Route: 041
     Dates: start: 20060515, end: 20060710
  2. CARBOPLATIN [Concomitant]
  3. TAXOL [Concomitant]
  4. RADIATION THERAPY [Concomitant]

REACTIONS (5)
  - HYPOTENSION [None]
  - INFECTION [None]
  - LEUKOPENIA [None]
  - PYREXIA [None]
  - WHITE BLOOD CELL COUNT DECREASED [None]
